FAERS Safety Report 8682710 (Version 2)
Quarter: 2012Q4

REPORT INFORMATION
  Report Type: 
  Country: US (occurrence: US)
  Receive Date: 20120725
  Receipt Date: 20121228
  Transmission Date: 20130627
  Serious: No
  Sender: FDA-Public Use
  Company Number: US-ASTRAZENECA-2012SE48336

PATIENT
  Age: 80 Year
  Sex: Male
  Weight: 69.4 kg

DRUGS (3)
  1. PULMICORT FLEXHALER [Suspect]
     Indication: ASTHMA
     Dosage: 180 MCG 2 PUFFS BID
     Route: 055
  2. PULMICORT FLEXHALER [Suspect]
     Indication: ASTHMA
     Dosage: 1 PUFF BID
     Route: 055
  3. SYMBICORT PMDI [Suspect]
     Indication: ASTHMA
     Dosage: 160/4.5 MCG 2 PUFFS BID
     Route: 055
     Dates: start: 2010

REACTIONS (5)
  - Asthma [Unknown]
  - Malaise [Unknown]
  - Nasopharyngitis [Unknown]
  - Dysphonia [Unknown]
  - Intentional drug misuse [Unknown]
